FAERS Safety Report 12310746 (Version 5)
Quarter: 2018Q2

REPORT INFORMATION
  Report Type: Report from Study
  Country: US (occurrence: US)
  Receive Date: 20160427
  Receipt Date: 20180615
  Transmission Date: 20180711
  Serious: Yes (Death, Other)
  Sender: FDA-Public Use
  Company Number: US-ACTELION-A-NJ2015-118950

PATIENT
  Age: 64 Year
  Sex: Female

DRUGS (14)
  1. ADVAIR HFA [Concomitant]
     Active Substance: FLUTICASONE PROPIONATE\SALMETEROL XINAFOATE
  2. TRACLEER [Suspect]
     Active Substance: BOSENTAN
     Indication: PULMONARY ARTERIAL HYPERTENSION
     Dosage: 125 MG, BID
     Route: 048
     Dates: start: 20161012
  3. TREPROSTINIL DIOLAMIN [Suspect]
     Active Substance: TREPROSTINIL DIOLAMINE
     Dosage: 10 MG, BID
     Route: 048
  4. FUROSEMIDE. [Concomitant]
     Active Substance: FUROSEMIDE
  5. ORENITRAM [Concomitant]
     Active Substance: TREPROSTINIL
  6. VENTOLIN [Concomitant]
     Active Substance: ALBUTEROL SULFATE
  7. ACETAMINOPHEN. [Concomitant]
     Active Substance: ACETAMINOPHEN
  8. TREPROSTINIL DIOLAMIN [Suspect]
     Active Substance: TREPROSTINIL DIOLAMINE
     Indication: PRODUCT USED FOR UNKNOWN INDICATION
     Dosage: 12 MG, BID
     Route: 048
  9. COUMADIN [Concomitant]
     Active Substance: WARFARIN SODIUM
  10. GLUCOSAMINE [Concomitant]
     Active Substance: GLUCOSAMINE
  11. HYDROCODONE [Concomitant]
     Active Substance: HYDROCODONE
  12. TRACLEER [Suspect]
     Active Substance: BOSENTAN
     Dosage: 125 MG, BID
     Route: 048
  13. RIOCIGUAT. [Concomitant]
     Active Substance: RIOCIGUAT
     Dosage: 1 MG, TID
     Route: 048
  14. RIOCIGUAT. [Concomitant]
     Active Substance: RIOCIGUAT
     Dosage: 0.5 MG, TID
     Dates: start: 20160415, end: 20160417

REACTIONS (23)
  - Fall [Unknown]
  - Palpitations [Unknown]
  - Death [Fatal]
  - Hypotension [Unknown]
  - Oropharyngeal pain [Unknown]
  - Diarrhoea [Unknown]
  - Anxiety [Unknown]
  - Lip injury [Unknown]
  - Loss of consciousness [Unknown]
  - Heart rate increased [Unknown]
  - Dizziness [Unknown]
  - Foot fracture [Unknown]
  - Pain in jaw [Unknown]
  - Arthralgia [Unknown]
  - Headache [Recovered/Resolved]
  - Syncope [Unknown]
  - Oxygen saturation decreased [Unknown]
  - Vomiting [Recovered/Resolved]
  - Flushing [Unknown]
  - Ankle fracture [Unknown]
  - Musculoskeletal pain [Unknown]
  - Fatigue [Unknown]
  - Dyspnoea [Unknown]

NARRATIVE: CASE EVENT DATE: 20180501
